FAERS Safety Report 11338460 (Version 1)
Quarter: 2015Q3

REPORT INFORMATION
  Report Type: Spontaneous
  Country: US (occurrence: US)
  Receive Date: 20150803
  Receipt Date: 20150803
  Transmission Date: 20151125
  Serious: Yes (Life-Threatening, Hospitalization)
  Sender: FDA-Public Use
  Company Number: US-ELI_LILLY_AND_COMPANY-US200707005556

PATIENT
  Age: 16 Year
  Sex: Male
  Weight: 76.64 kg

DRUGS (3)
  1. STRATTERA [Suspect]
     Active Substance: ATOMOXETINE HYDROCHLORIDE
     Dosage: 50 MG, UNK
     Route: 048
     Dates: start: 200507, end: 2005
  2. STRATTERA [Suspect]
     Active Substance: ATOMOXETINE HYDROCHLORIDE
     Dosage: 60 MG, UNK
     Route: 048
     Dates: start: 2005, end: 20050913
  3. STRATTERA [Suspect]
     Active Substance: ATOMOXETINE HYDROCHLORIDE
     Indication: ATTENTION DEFICIT/HYPERACTIVITY DISORDER
     Dosage: 25 MG, UNK
     Route: 048
     Dates: start: 20050628, end: 200507

REACTIONS (9)
  - Aggression [Recovered/Resolved]
  - Feeling of despair [Recovered/Resolved]
  - Bipolar disorder [Not Recovered/Not Resolved]
  - Tachyphrenia [Recovered/Resolved]
  - Irritability [Recovered/Resolved]
  - Thinking abnormal [Recovered/Resolved]
  - Mood altered [Recovered/Resolved]
  - Abnormal behaviour [Recovered/Resolved]
  - Suicidal ideation [Recovered/Resolved]

NARRATIVE: CASE EVENT DATE: 2005
